FAERS Safety Report 21390894 (Version 1)
Quarter: 2022Q3

REPORT INFORMATION
  Report Type: Spontaneous
  Country: US (occurrence: None)
  Receive Date: 20220928
  Receipt Date: 20220928
  Transmission Date: 20221027
  Serious: Yes (Other)
  Sender: FDA-Public Use
  Company Number: None

PATIENT
  Age: 26 Year
  Sex: Male
  Weight: 77 kg

DRUGS (1)
  1. RISPERIDONE [Suspect]
     Active Substance: RISPERIDONE
     Indication: Schizoaffective disorder
     Dosage: 2 MG BID PO
     Route: 048
     Dates: start: 20220601, end: 20220602

REACTIONS (6)
  - Swollen tongue [None]
  - Tongue disorder [None]
  - Tremor [None]
  - Dyspnoea [None]
  - Respiratory depression [None]
  - Dystonia [None]

NARRATIVE: CASE EVENT DATE: 20220602
